FAERS Safety Report 9425129 (Version 2)
Quarter: 2013Q3

REPORT INFORMATION
  Report Type: Spontaneous
  Country: JP (occurrence: JP)
  Receive Date: 20130729
  Receipt Date: 20130823
  Transmission Date: 20140515
  Serious: Yes (Other)
  Sender: FDA-Public Use
  Company Number: JP-PFIZER INC-2013217637

PATIENT
  Age: 50 Year
  Sex: Female

DRUGS (5)
  1. FARMORUBICIN [Suspect]
     Indication: BREAST CANCER
     Route: 041
  2. ENDOXAN [Concomitant]
     Indication: BREAST CANCER
  3. EMEND [Concomitant]
  4. ALOXI [Concomitant]
  5. DECADRON [Concomitant]

REACTIONS (2)
  - Hepatic function abnormal [Unknown]
  - Blood alkaline phosphatase increased [Unknown]
